FAERS Safety Report 5646040-6 (Version None)
Quarter: 2008Q1

REPORT INFORMATION
  Report Type: 
  Country: None (occurrence: None)
  Receive Date: 20080229
  Receipt Date: 20080226
  Transmission Date: 20080703
  Serious: Yes (Hospitalization)
  Sender: FDA-Public Use
  Company Number: AU-GENENTECH-246551

PATIENT
  Sex: Female

DRUGS (2)
  1. BEVACIZUMAB [Suspect]
     Indication: BREAST CANCER METASTATIC
     Dosage: 750 MG, Q3W
     Route: 042
     Dates: start: 20070504
  2. TAXOTERE [Suspect]
     Indication: CHEMOTHERAPY
     Dosage: 60 MG, UNKNOWN
     Route: 065
     Dates: start: 20070504

REACTIONS (1)
  - ASCITES [None]
